FAERS Safety Report 5317034-5 (Version None)
Quarter: 2007Q2

REPORT INFORMATION
  Report Type: 
  Country: None (occurrence: None)
  Receive Date: 20070504
  Receipt Date: 20070425
  Transmission Date: 20071010
  Serious: Yes (Other)
  Sender: FDA-Public Use
  Company Number: GB-ROCHE-495566

PATIENT
  Age: 12 Year
  Sex: Male

DRUGS (2)
  1. CEFTRIAXONE SODIUM [Suspect]
     Indication: DRUG USE FOR UNKNOWN INDICATION
     Route: 042
     Dates: start: 20061209, end: 20070309
  2. TEICOPLANIN [Concomitant]
     Route: 042
     Dates: start: 20061209, end: 20070405

REACTIONS (7)
  - ABDOMINAL PAIN [None]
  - BLOOD AMYLASE INCREASED [None]
  - C-REACTIVE PROTEIN INCREASED [None]
  - PAIN [None]
  - PANCREATITIS [None]
  - RED BLOOD CELL SEDIMENTATION RATE INCREASED [None]
  - WHITE BLOOD CELL COUNT INCREASED [None]
